FAERS Safety Report 19428172 (Version 1)
Quarter: 2021Q2

REPORT INFORMATION
  Report Type: Spontaneous
  Country: US (occurrence: US)
  Receive Date: 20210616
  Receipt Date: 20210616
  Transmission Date: 20210717
  Serious: No
  Sender: FDA-Public Use
  Company Number: US-ROCHE-2708748

PATIENT
  Age: 29 Year
  Sex: Female
  Weight: 69.46 kg

DRUGS (5)
  1. BACLOFEN. [Concomitant]
     Active Substance: BACLOFEN
     Indication: MUSCLE SPASMS
     Route: 048
     Dates: start: 2010
  2. GENTAMICIN. [Concomitant]
     Active Substance: GENTAMICIN
     Indication: NEUROGENIC BLADDER
     Route: 043
  3. ACTEMRA [Suspect]
     Active Substance: TOCILIZUMAB
     Indication: NEUROMYELITIS OPTICA SPECTRUM DISORDER
     Route: 042
     Dates: start: 20150401
  4. OCREVUS [Suspect]
     Active Substance: OCRELIZUMAB
     Indication: PRODUCT USED FOR UNKNOWN INDICATION
     Route: 065
  5. TRULANCE [Concomitant]
     Active Substance: PLECANATIDE
     Indication: NEUROGENIC BOWEL
     Route: 048
     Dates: start: 202010

REACTIONS (3)
  - Anxiety [Not Recovered/Not Resolved]
  - Intentional product use issue [Unknown]
  - Off label use [Unknown]

NARRATIVE: CASE EVENT DATE: 201504
